FAERS Safety Report 24556715 (Version 2)
Quarter: 2024Q4

REPORT INFORMATION
  Report Type: Report from Study
  Country: JP (occurrence: JP)
  Receive Date: 20241028
  Receipt Date: 20241112
  Transmission Date: 20250115
  Serious: Yes (Other)
  Sender: ALNYLAM PHARMACEUTICALS
  Company Number: JP-ALNYLAM PHARMACEUTICALS, INC.-ALN-2024-005869

PATIENT

DRUGS (1)
  1. AMVUTTRA [Suspect]
     Active Substance: VUTRISIRAN
     Indication: Hereditary neuropathic amyloidosis
     Dosage: 25 MILLIGRAM, Q3W
     Route: 058
     Dates: start: 20230407

REACTIONS (4)
  - Colon cancer [Recovering/Resolving]
  - Metastases to liver [Recovering/Resolving]
  - Metastases to peritoneum [Recovering/Resolving]
  - Metastases to central nervous system [Recovering/Resolving]
